FAERS Safety Report 19062076 (Version 1)
Quarter: 2021Q1

REPORT INFORMATION
  Report Type: Spontaneous
  Country: FR (occurrence: FR)
  Receive Date: 20210326
  Receipt Date: 20210326
  Transmission Date: 20210420
  Serious: Yes (Other)
  Sender: FDA-Public Use
  Company Number: FR-MYLANLABS-2021M1016105

PATIENT
  Age: 61 Year
  Sex: Female
  Weight: 110 kg

DRUGS (15)
  1. OXYCODONE [Suspect]
     Active Substance: OXYCODONE
     Indication: PAIN
     Dosage: UNK
     Route: 048
  2. VOGALENE [Concomitant]
     Active Substance: METOPIMAZINE
     Dosage: UNK
     Route: 048
  3. PREGABALIN. [Suspect]
     Active Substance: PREGABALIN
     Indication: PAIN
     Dosage: UNK
     Route: 048
     Dates: start: 20200203, end: 20200209
  4. FUROSEMIDE. [Concomitant]
     Active Substance: FUROSEMIDE
     Dosage: UNK
     Route: 048
  5. LOVENOX [Concomitant]
     Active Substance: ENOXAPARIN SODIUM
     Dosage: UNK
     Route: 058
     Dates: start: 20200121
  6. CHOLURSO [Concomitant]
     Active Substance: URSODIOL
     Dosage: UNK
     Route: 048
  7. LANSOPRAZOLE. [Concomitant]
     Active Substance: LANSOPRAZOLE
     Dosage: UNK
     Route: 048
  8. PROPRANOLOL [Concomitant]
     Active Substance: PROPRANOLOL HYDROCHLORIDE
     Dosage: UNK
     Route: 048
  9. DOLIPRANE [Concomitant]
     Active Substance: ACETAMINOPHEN
     Dosage: UNK
     Route: 048
  10. OXYNORMORO [Concomitant]
     Active Substance: OXYCODONE HYDROCHLORIDE
     Dosage: UNK
     Route: 048
  11. CORTANCYL [Concomitant]
     Active Substance: PREDNISONE
     Dosage: 30 MILLIGRAM, QD
     Route: 048
     Dates: start: 20200121
  12. SERTRALINE ARROW [Suspect]
     Active Substance: SERTRALINE HYDROCHLORIDE
     Indication: DEPRESSION
     Dosage: 25 MILLIGRAM, QD
     Route: 048
     Dates: start: 20200128, end: 20200209
  13. VERSATIS [Concomitant]
     Active Substance: LIDOCAINE
     Dosage: UNK
     Route: 003
  14. CACIT VITAMINE D3 [Concomitant]
     Active Substance: CALCIUM CARBONATE\CHOLECALCIFEROL
     Dosage: UNK
     Route: 048
  15. TARDYFERON [Concomitant]
     Active Substance: FERROUS SULFATE
     Dosage: UNK
     Route: 048

REACTIONS (1)
  - Cholestasis [Recovering/Resolving]

NARRATIVE: CASE EVENT DATE: 20200210
